FAERS Safety Report 17233461 (Version 1)
Quarter: 2020Q1

REPORT INFORMATION
  Report Type: Spontaneous
  Country: ES (occurrence: ES)
  Receive Date: 20200104
  Receipt Date: 20200104
  Transmission Date: 20200409
  Serious: Yes (Other)
  Sender: FDA-Public Use
  Company Number: ES-ACCORD-168345

PATIENT
  Age: 43 Year
  Sex: Male

DRUGS (7)
  1. ACFOL [Concomitant]
     Active Substance: FOLIC ACID
     Dates: start: 20181107, end: 20190909
  2. ZARATOR [Concomitant]
     Active Substance: ATORVASTATIN CALCIUM
     Indication: HYPERCHOLESTEROLAEMIA
     Dosage: 40 MG/DAY
     Dates: end: 201708
  3. SKILARENCE [Suspect]
     Active Substance: DIMETHYL FUMARATE
     Indication: PRODUCT USED FOR UNKNOWN INDICATION
     Dosage: PROGRESSIVE DOSES ACCORDING TO SMPC
     Dates: start: 20171204, end: 20180521
  4. SECALIP [Concomitant]
     Active Substance: FENOFIBRATE
     Indication: HYPERCHOLESTEROLAEMIA
     Dosage: 200 MG/DAY
     Dates: end: 201708
  5. OMEPRAZOLE. [Concomitant]
     Active Substance: OMEPRAZOLE
     Indication: GASTROOESOPHAGEAL REFLUX DISEASE
  6. METHOTREXATE. [Suspect]
     Active Substance: METHOTREXATE
     Indication: PRODUCT USED FOR UNKNOWN INDICATION
     Route: 065
     Dates: start: 20181107, end: 20190909
  7. OMACOR [Concomitant]
     Active Substance: OMEGA-3-ACID ETHYL ESTERS
     Indication: HYPERCHOLESTEROLAEMIA
     Dosage: 1000 MG/DAY
     Dates: end: 201708

REACTIONS (2)
  - Drug ineffective [Unknown]
  - Acute myeloid leukaemia [Unknown]
